FAERS Safety Report 15362247 (Version 1)
Quarter: 2018Q3

REPORT INFORMATION
  Report Type: Spontaneous
  Country: CA (occurrence: CA)
  Receive Date: 20180907
  Receipt Date: 20180907
  Transmission Date: 20181010
  Serious: Yes (Hospitalization)
  Sender: FDA-Public Use
  Company Number: CA-PFIZER INC-2018357835

PATIENT
  Age: 62 Year
  Sex: Female

DRUGS (4)
  1. PRADAX [Suspect]
     Active Substance: DABIGATRAN ETEXILATE MESYLATE
     Indication: ATRIAL FIBRILLATION
     Dosage: UNK
     Route: 065
  2. BRILINTA [Concomitant]
     Active Substance: TICAGRELOR
     Dosage: UNK
     Route: 065
  3. ASPIRIN [ACETYLSALICYLIC ACID] [Concomitant]
     Active Substance: ASPIRIN
     Dosage: UNK
     Route: 065
  4. AMIODARONE HCL [Suspect]
     Active Substance: AMIODARONE HYDROCHLORIDE
     Dosage: UNK
     Route: 065

REACTIONS (4)
  - Menorrhagia [Recovered/Resolved]
  - Haemorrhage [Recovered/Resolved]
  - Fibroma [Recovered/Resolved]
  - Uterine leiomyoma [Recovered/Resolved]
